FAERS Safety Report 10193951 (Version 1)
Quarter: 2014Q2

REPORT INFORMATION
  Report Type: Spontaneous
  Country: US (occurrence: US)
  Receive Date: 20140524
  Receipt Date: 20140524
  Transmission Date: 20141212
  Serious: No
  Sender: FDA-Public Use
  Company Number: US-SANOFI-AVENTIS-2013SA050379

PATIENT
  Age: 73 Year
  Sex: Female

DRUGS (2)
  1. SOLOSTAR [Suspect]
     Indication: DEVICE THERAPY
     Dosage: TREATMENT START DATE: 5-7 YEARS
  2. LANTUS SOLOSTAR [Suspect]
     Indication: TYPE 2 DIABETES MELLITUS
     Dosage: TREATMENT START DATE: 5-7 YEARS DOSE:40 UNIT(S)
     Route: 058

REACTIONS (1)
  - Blood glucose increased [Unknown]
